FAERS Safety Report 15487291 (Version 1)
Quarter: 2018Q4

REPORT INFORMATION
  Report Type: Spontaneous
  Country: US (occurrence: US)
  Receive Date: 20181010
  Receipt Date: 20181010
  Transmission Date: 20190205
  Serious: Yes (Hospitalization)
  Sender: FDA-Public Use
  Company Number: None

PATIENT
  Age: 69 Year
  Sex: Male
  Weight: 71.55 kg

DRUGS (1)
  1. TRAMADOL. [Suspect]
     Active Substance: TRAMADOL
     Indication: POSTOPERATIVE ANALGESIA
     Dosage: ?          QUANTITY:1 TABLET(S);?
     Route: 048
     Dates: start: 20181001, end: 20181007

REACTIONS (7)
  - Dysuria [None]
  - Pyrexia [None]
  - Arthralgia [None]
  - Cyanosis [None]
  - Insomnia [None]
  - Pain in extremity [None]
  - Anuria [None]

NARRATIVE: CASE EVENT DATE: 20181001
